FAERS Safety Report 23681010 (Version 1)
Quarter: 2024Q1

REPORT INFORMATION
  Report Type: Spontaneous
  Country: DE (occurrence: DE)
  Receive Date: 20240328
  Receipt Date: 20240328
  Transmission Date: 20240409
  Serious: Yes (Other)
  Sender: FDA-Public Use
  Company Number: None

PATIENT
  Age: 82 Year
  Sex: Male
  Weight: 80 kg

DRUGS (11)
  1. MEROPENEM [Suspect]
     Active Substance: MEROPENEM
     Indication: Pneumonia
     Dosage: 1-1-1
     Route: 042
     Dates: start: 20231218, end: 20231227
  2. Mono Embolex 3000IE [Concomitant]
     Dosage: 0-0-1 PRE-FILLED SYRINGE
     Route: 058
     Dates: start: 20231213, end: 20240103
  3. ACTRAPID [Concomitant]
     Active Substance: INSULIN HUMAN
  4. Novaminsulfon 500mg [Concomitant]
     Dosage: 2-2-2-2
     Route: 048
     Dates: start: 20231213, end: 20231225
  5. DONEPEZIL [Concomitant]
     Active Substance: DONEPEZIL
     Dosage: 0-0-1-0
     Route: 048
     Dates: start: 20231213, end: 20240103
  6. Propofol Perfusor [Concomitant]
     Dosage: ()
     Dates: start: 20231213, end: 20231225
  7. Natriumpicosulfat 7,5mg/ml [Concomitant]
     Dosage: 20-0-0 IF NECESSARY ; AS NECESSARY
     Route: 048
     Dates: start: 20231213, end: 20240103
  8. Bisacodyl 10mg [Concomitant]
     Dosage: 1-0-0 IF NECESSARY ; AS NECESSARY
     Route: 054
     Dates: start: 20231213, end: 20240103
  9. PIPERACILLIN SODIUM\TAZOBACTAM SODIUM [Suspect]
     Active Substance: PIPERACILLIN SODIUM\TAZOBACTAM SODIUM
     Indication: Pneumonia
     Dosage: 1-1-1
     Route: 042
     Dates: start: 20231216, end: 20231218
  10. POLYETHYLENE GLYCOLS [Concomitant]
     Active Substance: POLYETHYLENE GLYCOLS
     Dosage: BAG () ; AS NECESSARY
     Route: 048
     Dates: start: 20231213, end: 20240103
  11. Berlinsulin 30/70 Pen [Concomitant]
     Dosage: 20-0-24 IU
     Route: 058
     Dates: start: 20231213, end: 20240103

REACTIONS (3)
  - Hypernatraemia [Recovered/Resolved]
  - Hypokalaemia [Recovered/Resolved]
  - Off label use [Unknown]

NARRATIVE: CASE EVENT DATE: 20231201
